FAERS Safety Report 19563849 (Version 1)
Quarter: 2021Q3

REPORT INFORMATION
  Report Type: Spontaneous
  Country: MY (occurrence: MY)
  Receive Date: 20210714
  Receipt Date: 20210714
  Transmission Date: 20211014
  Serious: Yes (Other)
  Sender: FDA-Public Use
  Company Number: MY-PFIZER INC-2021808400

PATIENT
  Age: 31 Year
  Sex: Male

DRUGS (1)
  1. TAZOCIN [Suspect]
     Active Substance: PIPERACILLIN SODIUM\TAZOBACTAM SODIUM
     Indication: SYNOVITIS
     Dosage: 4.5 G, 3X/DAY
     Route: 042

REACTIONS (3)
  - Rash morbilliform [Recovering/Resolving]
  - Off label use [Unknown]
  - Hepatitis [Recovering/Resolving]
